FAERS Safety Report 8108610-5 (Version None)
Quarter: 2012Q1

REPORT INFORMATION
  Report Type: 
  Country: None (occurrence: None)
  Receive Date: 20120202
  Receipt Date: 20120113
  Transmission Date: 20120608
  Serious: No
  Sender: FDA-Public Use
  Company Number: US-AMGEN-USASP2012002706

PATIENT
  Age: 65 Year
  Sex: Male

DRUGS (3)
  1. NAPROXEN (ALEVE) [Concomitant]
     Dosage: UNK
  2. ENBREL [Suspect]
     Indication: RHEUMATOID ARTHRITIS
     Dosage: 25 MG, 2 TIMES/WK
     Dates: start: 20031001
  3. METHOTREXATE [Concomitant]
     Dosage: 1 MG, UNK
     Dates: start: 20100101

REACTIONS (3)
  - PAIN IN EXTREMITY [None]
  - INJECTION SITE PAIN [None]
  - ABDOMINAL PAIN UPPER [None]
